FAERS Safety Report 7638817-2 (Version None)
Quarter: 2011Q3

REPORT INFORMATION
  Report Type: 
  Country: None (occurrence: None)
  Receive Date: 20110727
  Receipt Date: 20110718
  Transmission Date: 20111222
  Serious: Yes (Other)
  Sender: FDA-Public Use
  Company Number: US-BAXTER-2011BH012651

PATIENT
  Age: 47 Year
  Sex: Male

DRUGS (11)
  1. PROLEUKIN [Suspect]
     Route: 065
     Dates: start: 20090727, end: 20090730
  2. ACYCLOVIR [Concomitant]
     Indication: PRODUCT USED FOR UNKNOWN INDICATION
     Route: 065
     Dates: start: 20090720, end: 20090806
  3. CYCLOPHOSPHAMIDE [Suspect]
     Indication: MALIGNANT MELANOMA
     Route: 042
     Dates: start: 20100517, end: 20100523
  4. CYCLOPHOSPHAMIDE [Suspect]
     Route: 042
     Dates: start: 20090720, end: 20090726
  5. FLUDARABINE PHOSPHATE [Suspect]
     Route: 065
     Dates: start: 20090722, end: 20090726
  6. PROLEUKIN [Suspect]
     Indication: MALIGNANT MELANOMA
     Route: 065
     Dates: start: 20100517, end: 20100528
  7. FLUDARABINE PHOSPHATE [Suspect]
     Indication: MALIGNANT MELANOMA
     Route: 065
     Dates: start: 20100519, end: 20100523
  8. ACYCLOVIR [Concomitant]
     Route: 065
     Dates: start: 20100517, end: 20110210
  9. KEPPRA [Concomitant]
     Indication: PRODUCT USED FOR UNKNOWN INDICATION
     Route: 065
     Dates: start: 20100517
  10. FILGRASTIM [Concomitant]
     Indication: PRODUCT USED FOR UNKNOWN INDICATION
     Route: 065
     Dates: start: 20110209, end: 20110209
  11. BACTRIM DS [Concomitant]
     Indication: PRODUCT USED FOR UNKNOWN INDICATION
     Route: 065
     Dates: start: 20090720, end: 20110208

REACTIONS (4)
  - LARGE GRANULAR LYMPHOCYTOSIS [None]
  - WHITE BLOOD CELL COUNT DECREASED [None]
  - GRANULOCYTE COUNT DECREASED [None]
  - NEUTROPHIL COUNT DECREASED [None]
